FAERS Safety Report 18335028 (Version 1)
Quarter: 2020Q4

REPORT INFORMATION
  Report Type: Report from Study
  Country: JP (occurrence: JP)
  Receive Date: 20201001
  Receipt Date: 20201001
  Transmission Date: 20210113
  Serious: Yes (Hospitalization)
  Sender: FDA-Public Use
  Company Number: JP-ASTRAZENECA-2019SE62572

PATIENT
  Age: 85 Year
  Sex: Male
  Weight: 50 kg

DRUGS (24)
  1. FASENRA [Suspect]
     Active Substance: BENRALIZUMAB
     Indication: ASTHMA
     Dosage: 30.0MG ONCE/SINGLE ADMINISTRATION
     Route: 058
     Dates: start: 20190718, end: 20190718
  2. FEXOFENADINE HYDROCHLORIDE OD [Concomitant]
     Active Substance: FEXOFENADINE HYDROCHLORIDE
     Indication: RENAL FAILURE
     Route: 048
     Dates: start: 20181203
  3. L-CARBOCISTEINE [Concomitant]
     Active Substance: CARBOCYSTEINE
     Indication: ASTHMA
     Route: 048
  4. SULTANOL [Concomitant]
     Active Substance: ALBUTEROL SULFATE
     Indication: ASTHMA
     Route: 055
     Dates: start: 20181206, end: 20181227
  5. SOL-MELCORT [Concomitant]
     Active Substance: METHYLPREDNISOLONE SODIUM SUCCINATE
     Indication: ASTHMA
     Dates: start: 20181207, end: 20181207
  6. FASENRA [Suspect]
     Active Substance: BENRALIZUMAB
     Indication: ASTHMA
     Dosage: 30.0MG ONCE/SINGLE ADMINISTRATION
     Route: 058
     Dates: start: 20181112, end: 20181112
  7. FASENRA [Suspect]
     Active Substance: BENRALIZUMAB
     Indication: ASTHMA
     Dosage: 30.0MG ONCE/SINGLE ADMINISTRATION
     Route: 058
     Dates: start: 20190424, end: 20190424
  8. FASENRA [Suspect]
     Active Substance: BENRALIZUMAB
     Indication: ASTHMA
     Dosage: 30.0MG ONCE/SINGLE ADMINISTRATION
     Route: 058
     Dates: start: 20191009, end: 20191009
  9. PREDONINE [Concomitant]
     Active Substance: PREDNISOLONE
     Indication: ASTHMA
     Route: 048
     Dates: end: 20181115
  10. FEXOFENADINE HYDROCHLORIDE OD [Concomitant]
     Active Substance: FEXOFENADINE HYDROCHLORIDE
     Indication: RENAL FAILURE
     Route: 048
     Dates: end: 20181202
  11. FASENRA [Suspect]
     Active Substance: BENRALIZUMAB
     Indication: ASTHMA
     Dosage: 30.0MG ONCE/SINGLE ADMINISTRATION
     Route: 058
     Dates: start: 20190226, end: 20190226
  12. PREDONINE [Concomitant]
     Active Substance: PREDNISOLONE
     Indication: ASTHMA
     Route: 048
     Dates: start: 20181206, end: 20181206
  13. CARVEDILOL. [Concomitant]
     Active Substance: CARVEDILOL
     Indication: CARDIAC FAILURE
     Route: 048
  14. RELVAR [Concomitant]
     Active Substance: FLUTICASONE FUROATE\VILANTEROL TRIFENATATE
     Indication: ASTHMA
     Route: 055
  15. AMBROXOL HYDROCHLORIDE [Concomitant]
     Active Substance: AMBROXOL HYDROCHLORIDE
     Indication: ASTHMA
     Route: 048
  16. MEPTIN AIR [Concomitant]
     Active Substance: PROCATEROL HYDROCHLORIDE
     Indication: ASTHMA
     Route: 055
     Dates: start: 20181203, end: 20190226
  17. LANSOPRAZOLE OD [Concomitant]
     Active Substance: LANSOPRAZOLE
     Indication: GASTRIC DISORDER
     Route: 048
  18. PREDONINE [Concomitant]
     Active Substance: PREDNISOLONE
     Indication: ASTHMA
     Route: 048
     Dates: start: 20181208, end: 20181211
  19. IRBESARTAN OD [Concomitant]
     Indication: HYPERTENSION
     Route: 048
  20. AMLODIPINE [Concomitant]
     Active Substance: AMLODIPINE BESYLATE
     Indication: HYPERTENSION
     Route: 048
  21. MEPTIN [Concomitant]
     Active Substance: PROCATEROL HYDROCHLORIDE
     Indication: ASTHMA
     Route: 055
     Dates: start: 20181203, end: 20190226
  22. SOL-MELCORT [Concomitant]
     Active Substance: METHYLPREDNISOLONE SODIUM SUCCINATE
     Indication: ASTHMA
     Dates: start: 20181208, end: 20181208
  23. PRAVASTATIN NA [Concomitant]
     Active Substance: PRAVASTATIN SODIUM
     Indication: HYPERLIPIDAEMIA
     Route: 048
  24. SOL-MELCORT [Concomitant]
     Active Substance: METHYLPREDNISOLONE SODIUM SUCCINATE
     Indication: ASTHMA
     Dates: start: 20190116, end: 20190121

REACTIONS (2)
  - Delirium [Recovered/Resolved]
  - Asthma [Recovering/Resolving]

NARRATIVE: CASE EVENT DATE: 20181205
